FAERS Safety Report 7557483-8 (Version None)
Quarter: 2011Q2

REPORT INFORMATION
  Report Type: 
  Country: None (occurrence: None)
  Receive Date: 20110610
  Receipt Date: 20110601
  Transmission Date: 20111010
  Serious: Yes (Other)
  Sender: FDA-Public Use
  Company Number: LIP 11008

PATIENT
  Age: 49 Year
  Sex: Male

DRUGS (1)
  1. LIPOFEN [Suspect]
     Dates: start: 20100801

REACTIONS (2)
  - PULMONARY EMBOLISM [None]
  - DEEP VEIN THROMBOSIS [None]
